FAERS Safety Report 6977904-9 (Version None)
Quarter: 2010Q3

REPORT INFORMATION
  Report Type: 
  Country: None (occurrence: None)
  Receive Date: 20100913
  Receipt Date: 20100901
  Transmission Date: 20110219
  Serious: Yes (Hospitalization)
  Sender: FDA-Public Use
  Company Number: US-US-EMD SERONO, INC.-233224J09USA

PATIENT
  Sex: Female
  Weight: 107 kg

DRUGS (3)
  1. REBIF [Suspect]
     Indication: MULTIPLE SCLEROSIS
     Route: 058
     Dates: start: 20070322, end: 20100501
  2. STEROIDS [Concomitant]
     Indication: INTERVERTEBRAL DISC DEGENERATION
     Route: 065
  3. OTHER UNSPECIFIED MEDICATIONS [Concomitant]
     Route: 065

REACTIONS (4)
  - CHOLELITHIASIS [None]
  - MYOCARDIAL INFARCTION [None]
  - PNEUMONIA ASPIRATION [None]
  - STRESS [None]
